FAERS Safety Report 8239706-5 (Version None)
Quarter: 2012Q1

REPORT INFORMATION
  Report Type: 
  Country: None (occurrence: None)
  Receive Date: 20120328
  Receipt Date: 20120223
  Transmission Date: 20120608
  Serious: Yes (Hospitalization)
  Sender: FDA-Public Use
  Company Number: PHEH2012US006097

PATIENT
  Sex: Female

DRUGS (1)
  1. MYFORTIC [Suspect]
     Indication: TRANSPLANT
     Dosage: 360 MG, BID
     Route: 048
     Dates: start: 20070801

REACTIONS (1)
  - FAECAL INCONTINENCE [None]
